FAERS Safety Report 11056327 (Version 1)
Quarter: 2015Q2

REPORT INFORMATION
  Report Type: Spontaneous
  Country: IT (occurrence: IT)
  Receive Date: 20150422
  Receipt Date: 20150422
  Transmission Date: 20150821
  Serious: Yes (Hospitalization)
  Sender: FDA-Public Use
  Company Number: IT-MYLANLABS-2015M1013462

PATIENT

DRUGS (1)
  1. VALPROATE [Suspect]
     Active Substance: VALPROATE SODIUM
     Indication: BIPOLAR I DISORDER
     Dosage: 1000 MG/DAY
     Route: 065
     Dates: start: 2008

REACTIONS (1)
  - Pulmonary alveolar haemorrhage [Recovered/Resolved]
